FAERS Safety Report 8478797-3 (Version None)
Quarter: 2012Q2

REPORT INFORMATION
  Report Type: 
  Country: None (occurrence: None)
  Receive Date: 20120629
  Receipt Date: 20120625
  Transmission Date: 20120825
  Serious: Yes (Other)
  Sender: FDA-Public Use
  Company Number: US-ROCHE-791316

PATIENT
  Sex: Male
  Weight: 74.91 kg

DRUGS (6)
  1. ACCUTANE [Suspect]
     Dates: start: 19990501, end: 19990901
  2. TETRACYCLINE [Concomitant]
  3. ACCUTANE [Suspect]
     Indication: ACNE
     Route: 065
     Dates: start: 19870801, end: 19880101
  4. ACCUTANE [Suspect]
     Route: 065
     Dates: start: 19950101, end: 19950601
  5. ACCUTANE [Suspect]
     Route: 065
     Dates: start: 19970201, end: 19980701
  6. ERYTHROMYCIN [Concomitant]

REACTIONS (4)
  - STRESS [None]
  - INFLAMMATORY BOWEL DISEASE [None]
  - COLITIS ULCERATIVE [None]
  - DEPRESSION [None]
